FAERS Safety Report 5121847-2 (Version None)
Quarter: 2006Q4

REPORT INFORMATION
  Report Type: 
  Country: None (occurrence: None)
  Receive Date: 20061003
  Receipt Date: 20060822
  Transmission Date: 20070319
  Serious: Yes (Hospitalization)
  Sender: FDA-Public Use
  Company Number: SPV1-2006-00494

PATIENT
  Age: 49 Year
  Sex: Female

DRUGS (4)
  1. MIDON                              (MIDODRINE) [Suspect]
     Dosage: 10MG AM, 2.5MG LUNCH, 10MG 6PM
  2. FLUDROCORTISONE ACETATE [Concomitant]
  3. LEVOTHYROXINE SODIUM [Concomitant]
  4. ESTROGENS SOL/INJ [Concomitant]

REACTIONS (1)
  - TACHYCARDIA [None]
